FAERS Safety Report 9959998 (Version 1)
Quarter: 2014Q1

REPORT INFORMATION
  Report Type: Other
  Country: IE (occurrence: IE)
  Receive Date: 20140305
  Receipt Date: 20140305
  Transmission Date: 20141002
  Serious: Yes (Death)
  Sender: FDA-Public Use
  Company Number: IE-TARO PHARMACEUTICALS U.S.A., INC-2014SUN00469

PATIENT
  Sex: Male

DRUGS (8)
  1. WARFARIN [Suspect]
     Indication: ATRIAL FIBRILLATION
     Dosage: 4 MG/ 5 MG ALTERNATIVE DAYS
     Route: 048
     Dates: start: 20040630
  2. AMLIST [Concomitant]
  3. XALATAN EYE DROPS SOLUTION [Concomitant]
  4. LANOXIN PG  62.5 MICROGRAM TABLETS [Concomitant]
  5. PARACETAMOL [Concomitant]
  6. ATROPT EYE DROPS [Concomitant]
  7. HYTRIN [Concomitant]
  8. TRAXAM [Concomitant]
     Dosage: UNK, TID

REACTIONS (5)
  - Head injury [Fatal]
  - Fall [Fatal]
  - International normalised ratio increased [Fatal]
  - Rectal haemorrhage [Fatal]
  - Extradural haematoma [Fatal]
